FAERS Safety Report 25820404 (Version 1)
Quarter: 2025Q3

REPORT INFORMATION
  Report Type: Spontaneous
  Country: US (occurrence: US)
  Receive Date: 20250919
  Receipt Date: 20250919
  Transmission Date: 20251021
  Serious: No
  Sender: GLAXOSMITHKLINE
  Company Number: US-GSK-US2025AMR100271

PATIENT
  Sex: Female
  Weight: 86.621 kg

DRUGS (17)
  1. NUCALA [Suspect]
     Active Substance: MEPOLIZUMAB
     Indication: Arthralgia
     Dosage: 100 MG, Q4W
  2. NUCALA [Suspect]
     Active Substance: MEPOLIZUMAB
     Indication: Osteoarthritis
  3. NUCALA [Suspect]
     Active Substance: MEPOLIZUMAB
     Indication: Hypothyroidism
  4. NUCALA [Suspect]
     Active Substance: MEPOLIZUMAB
     Indication: Asthma
  5. NUCALA [Suspect]
     Active Substance: MEPOLIZUMAB
     Indication: Asthma
  6. NUCALA [Suspect]
     Active Substance: MEPOLIZUMAB
     Indication: Carotid artery occlusion
  7. NUCALA [Suspect]
     Active Substance: MEPOLIZUMAB
     Indication: Carotid artery stenosis
  8. NUCALA [Suspect]
     Active Substance: MEPOLIZUMAB
     Indication: Hyperlipidaemia
  9. NUCALA [Suspect]
     Active Substance: MEPOLIZUMAB
     Indication: Gastrooesophageal reflux disease
  10. NUCALA [Suspect]
     Active Substance: MEPOLIZUMAB
     Indication: Blood pressure increased
  11. NUCALA [Suspect]
     Active Substance: MEPOLIZUMAB
     Indication: Nephrolithiasis
  12. NUCALA [Suspect]
     Active Substance: MEPOLIZUMAB
     Indication: Dyspnoea
  13. NUCALA [Suspect]
     Active Substance: MEPOLIZUMAB
     Indication: Anxiety disorder
  14. NUCALA [Suspect]
     Active Substance: MEPOLIZUMAB
     Indication: Vitamin D deficiency
  15. NUCALA [Suspect]
     Active Substance: MEPOLIZUMAB
     Indication: Cardiovascular examination
  16. NUCALA [Suspect]
     Active Substance: MEPOLIZUMAB
     Indication: Viral disease carrier
  17. NUCALA [Suspect]
     Active Substance: MEPOLIZUMAB
     Indication: Arthropathy

REACTIONS (3)
  - Thyroid disorder [Unknown]
  - Vitamin D decreased [Unknown]
  - Product use in unapproved indication [Unknown]
